FAERS Safety Report 9351388 (Version 2)
Quarter: 2013Q3

REPORT INFORMATION
  Report Type: Spontaneous
  Country: US (occurrence: US)
  Receive Date: 20130617
  Receipt Date: 20130702
  Transmission Date: 20140515
  Serious: Yes (Other)
  Sender: FDA-Public Use
  Company Number: US-PFIZER INC-2013181014

PATIENT
  Age: 89 Year
  Sex: Male
  Weight: 68.03 kg

DRUGS (7)
  1. GABAPENTIN [Suspect]
     Indication: NEUROPATHY PERIPHERAL
     Dosage: 400 MG, 2X/DAY
  2. LISINOPRIL [Concomitant]
     Indication: HYPERTENSION
     Dosage: 10 MG/DAY
  3. ISOSORBIDE [Concomitant]
     Dosage: 30 MG/DAY
  4. EFFIENT [Concomitant]
     Dosage: 10 MG/DAY
  5. SIMVASTATIN [Concomitant]
     Indication: BLOOD CHOLESTEROL INCREASED
     Dosage: 30 MG/DAY
  6. ASPIRIN [Concomitant]
     Dosage: 81 MG/DAY
  7. TOVIAZ [Concomitant]
     Indication: INCONTINENCE
     Dosage: UNK

REACTIONS (5)
  - Abasia [Unknown]
  - Neuropathy peripheral [Unknown]
  - Impaired work ability [Unknown]
  - Insomnia [Unknown]
  - Pain [Unknown]
